FAERS Safety Report 8548479 (Version 2)
Quarter: 2012Q4

REPORT INFORMATION
  Report Type: 
  Country: FR (occurrence: FR)
  Receive Date: 20120507
  Receipt Date: 20120910
  Transmission Date: 20130627
  Serious: Yes (Hospitalization)
  Sender: FDA-Public Use
  Company Number: PHHY2012FR037619

PATIENT
  Sex: Female

DRUGS (7)
  1. ZOMETA [Suspect]
     Indication: HYPERCALCAEMIA
     Dosage: 4 mg, UNK
     Route: 042
     Dates: start: 20120207
  2. TAXOTERE [Suspect]
     Indication: BREAST CANCER
     Dosage: 111 mg,
     Route: 042
     Dates: start: 20120207
  3. TAXOTERE [Suspect]
     Dosage: 111 mg,
     Route: 042
     Dates: start: 20120228
  4. XELODA [Suspect]
     Indication: BREAST CANCER
     Dosage: 2960 mg, UNK
     Route: 048
     Dates: start: 20120207
  5. XELODA [Suspect]
     Dosage: 2 mg/m2,
     Dates: start: 201205
  6. MEDROL [Concomitant]
     Dosage: 48 mg
     Route: 048
  7. LOVENOX [Concomitant]
     Dosage: 4000 IU, UNK
     Route: 042

REACTIONS (7)
  - Palmar-plantar erythrodysaesthesia syndrome [Recovered/Resolved]
  - Hyperkeratosis [Unknown]
  - Skin exfoliation [Unknown]
  - Gait disturbance [Unknown]
  - Skin toxicity [Unknown]
  - Mucosal inflammation [Unknown]
  - Throat irritation [Unknown]
